FAERS Safety Report 9942425 (Version 2)
Quarter: 2015Q3

REPORT INFORMATION
  Report Type: Spontaneous
  Country: MX (occurrence: MX)
  Receive Date: 20140303
  Receipt Date: 20150819
  Transmission Date: 20151125
  Serious: Yes (Hospitalization, Other)
  Sender: FDA-Public Use
  Company Number: MX-PFIZER INC-2014054578

PATIENT
  Age: 22 Year
  Sex: Male
  Weight: 69 kg

DRUGS (1)
  1. CLINDAMYCIN [Suspect]
     Active Substance: CLINDAMYCIN\CLINDAMYCIN PHOSPHATE
     Indication: TONSILLITIS
     Dosage: 1800 MG, DAILY

REACTIONS (2)
  - Bone marrow failure [Unknown]
  - Pancytopenia [Recovered/Resolved]
